FAERS Safety Report 9543533 (Version 1)
Quarter: 2013Q3

REPORT INFORMATION
  Report Type: Spontaneous
  Country: US (occurrence: US)
  Receive Date: 20130923
  Receipt Date: 20130923
  Transmission Date: 20140515
  Serious: Yes (Hospitalization)
  Sender: FDA-Public Use
  Company Number: US-GLAXOSMITHKLINE-A1041697A

PATIENT
  Age: 66 Year
  Sex: Male

DRUGS (17)
  1. ALLI [Suspect]
     Indication: WEIGHT LOSS DIET
     Route: 048
  2. FUROSEMIDE [Suspect]
     Indication: CARDIAC FAILURE CONGESTIVE
     Dosage: 20MG TWICE PER DAY
     Route: 048
  3. NIASPAN [Suspect]
  4. METFORMIN [Suspect]
  5. PLAVIX [Suspect]
  6. GLIPIZIDE [Suspect]
  7. NEXIUM [Suspect]
  8. DILTIAZEM [Suspect]
  9. ENALAPRIL [Suspect]
  10. COUMADIN [Suspect]
  11. DIGOXIN [Suspect]
  12. CRESTOR [Suspect]
  13. POTASSIUM [Suspect]
  14. UNKNOWN [Suspect]
  15. ACTOS [Suspect]
  16. VICTOZA [Suspect]
  17. ALLERGY SHOTS [Suspect]
     Indication: MULTIPLE ALLERGIES

REACTIONS (6)
  - Fluid retention [Not Recovered/Not Resolved]
  - Weight increased [Not Recovered/Not Resolved]
  - Lung disorder [Unknown]
  - Urine output decreased [Not Recovered/Not Resolved]
  - Drug interaction [Unknown]
  - Cardiac failure congestive [Unknown]
